FAERS Safety Report 7373025-4 (Version None)
Quarter: 2011Q1

REPORT INFORMATION
  Report Type: 
  Country: None (occurrence: None)
  Receive Date: 20110324
  Receipt Date: 20110319
  Transmission Date: 20110831
  Serious: Yes (Other)
  Sender: FDA-Public Use
  Company Number: US-ABBOTT-11P-163-0713318-00

PATIENT
  Sex: Female
  Weight: 61.29 kg

DRUGS (5)
  1. SIMVASTATIN [Concomitant]
     Indication: PRODUCT USED FOR UNKNOWN INDICATION
  2. ASPIRIN [Concomitant]
     Indication: PRODUCT USED FOR UNKNOWN INDICATION
  3. LISINOPRIL [Concomitant]
     Indication: PRODUCT USED FOR UNKNOWN INDICATION
  4. NIASPAN [Suspect]
     Indication: BLOOD CHOLESTEROL INCREASED
     Dates: start: 20101001
  5. DILTIAZEM HCL [Concomitant]
     Indication: PRODUCT USED FOR UNKNOWN INDICATION

REACTIONS (13)
  - NAUSEA [None]
  - MUSCLE FATIGUE [None]
  - WEIGHT DECREASED [None]
  - DECREASED APPETITE [None]
  - FATIGUE [None]
  - VOMITING [None]
  - PRURITUS [None]
  - MALAISE [None]
  - PALPITATIONS [None]
  - FLUSHING [None]
  - FEELING HOT [None]
  - CHOLECYSTITIS INFECTIVE [None]
  - GASTRIC ULCER [None]
